FAERS Safety Report 14233762 (Version 1)
Quarter: 2017Q4

REPORT INFORMATION
  Report Type: Spontaneous
  Country: BE (occurrence: BE)
  Receive Date: 20171129
  Receipt Date: 20171129
  Transmission Date: 20180321
  Serious: Yes (Other)
  Sender: FDA-Public Use
  Company Number: BE-SA-2017SA238203

PATIENT

DRUGS (8)
  1. ASAFLOW [Suspect]
     Active Substance: ASPIRIN
     Route: 065
  2. ZYLORIC [Suspect]
     Active Substance: ALLOPURINOL
     Route: 065
  3. MAALOX ANTACID [Suspect]
     Active Substance: ALUMINUM HYDROXIDE\DIMETHICONE\MAGNESIUM HYDROXIDE
     Route: 048
  4. OMEPRAZOLE. [Suspect]
     Active Substance: OMEPRAZOLE
     Route: 065
     Dates: start: 20171030
  5. ALLOPURINOL. [Suspect]
     Active Substance: ALLOPURINOL
     Route: 065
  6. PRALUENT [Suspect]
     Active Substance: ALIROCUMAB
     Route: 058
     Dates: start: 2017
  7. ATOZET [Suspect]
     Active Substance: ATORVASTATIN CALCIUM\EZETIMIBE
     Route: 065
  8. ALIROCUMAB PREFILLED PEN [Suspect]
     Active Substance: ALIROCUMAB
     Dates: start: 2017

REACTIONS (2)
  - Yellow skin [Unknown]
  - Hepatitis toxic [Unknown]

NARRATIVE: CASE EVENT DATE: 201711
